FAERS Safety Report 8095750-2 (Version None)
Quarter: 2012Q1

REPORT INFORMATION
  Report Type: 
  Country: None (occurrence: None)
  Receive Date: 20120131
  Receipt Date: 20120118
  Transmission Date: 20120608
  Serious: Yes (Other)
  Sender: FDA-Public Use
  Company Number: US-ELI_LILLY_AND_COMPANY-US201012000256

PATIENT
  Sex: Male

DRUGS (7)
  1. FORTEO [Suspect]
     Dosage: 20 UG, QD
     Route: 058
  2. ACCUPRIL [Concomitant]
     Indication: BLOOD PRESSURE
     Dosage: UNK UNK, UNKNOWN
     Route: 065
  3. FORTEO [Suspect]
     Dosage: 20 UG, DAILY (1/D)
     Route: 058
  4. FORTEO [Suspect]
     Dosage: 20 UG, QD
     Route: 058
  5. FORTEO [Suspect]
     Dosage: 20 UG, QD
     Route: 058
  6. FORTEO [Suspect]
     Indication: OSTEOPOROSIS
     Dosage: 20 UG, DAILY (1/D)
     Route: 058
     Dates: start: 20100901
  7. FORTEO [Suspect]
     Dosage: 20 UG, QD
     Route: 058

REACTIONS (16)
  - SPINAL DISORDER [None]
  - NERVE INJURY [None]
  - LIMB INJURY [None]
  - PAIN [None]
  - DIZZINESS [None]
  - SHOULDER ARTHROPLASTY [None]
  - PAIN IN EXTREMITY [None]
  - BONE PAIN [None]
  - FALL [None]
  - BALANCE DISORDER [None]
  - NAUSEA [None]
  - SURGERY [None]
  - ARTHRALGIA [None]
  - INJECTION SITE HAEMATOMA [None]
  - MUSCULOSKELETAL PAIN [None]
  - MYALGIA [None]
